FAERS Safety Report 14760046 (Version 6)
Quarter: 2018Q2

REPORT INFORMATION
  Report Type: Spontaneous
  Country: US (occurrence: US)
  Receive Date: 20180413
  Receipt Date: 20180605
  Transmission Date: 20180711
  Serious: Yes (Hospitalization)
  Sender: FDA-Public Use
  Company Number: US-ACTELION-A-US2018-170599

PATIENT
  Age: 57 Year
  Sex: Male

DRUGS (5)
  1. TRACLEER [Suspect]
     Active Substance: BOSENTAN
     Indication: PULMONARY HYPERTENSION
     Dosage: 125 UNK, UNK
     Route: 048
     Dates: start: 20150411
  2. COUMADIN [Concomitant]
     Active Substance: WARFARIN SODIUM
  3. ORENITRAM [Concomitant]
     Active Substance: TREPROSTINIL
  4. REVATIO [Concomitant]
     Active Substance: SILDENAFIL CITRATE
  5. VELETRI [Suspect]
     Active Substance: EPOPROSTENOL
     Indication: PULMONARY HYPERTENSION
     Dosage: 6 NG/KG, PER MIN
     Route: 042
     Dates: start: 20180403

REACTIONS (4)
  - Catheter placement [Recovered/Resolved]
  - Pain in extremity [Unknown]
  - Headache [Unknown]
  - Pain [Unknown]
